FAERS Safety Report 24888641 (Version 1)
Quarter: 2025Q1

REPORT INFORMATION
  Report Type: Spontaneous
  Country: US (occurrence: None)
  Receive Date: 20250123
  Receipt Date: 20250123
  Transmission Date: 20250409
  Serious: Yes (Hospitalization)
  Sender: FDA-CTU
  Company Number: None

PATIENT
  Age: 81 Year
  Sex: Male

DRUGS (1)
  1. SEVELAMER CARBONATE [Suspect]
     Active Substance: SEVELAMER CARBONATE
     Indication: Hyperphosphataemia

REACTIONS (6)
  - Abdominal discomfort [None]
  - Early satiety [None]
  - Fatigue [None]
  - Constipation [None]
  - Hypophagia [None]
  - Azotaemia [None]

NARRATIVE: CASE EVENT DATE: 20241101
